FAERS Safety Report 4322141-X (Version None)
Quarter: 2004Q1

REPORT INFORMATION
  Report Type: 
  Country: None (occurrence: None)
  Receive Date: 20040319
  Receipt Date: 20040315
  Transmission Date: 20041129
  Serious: Yes (Hospitalization)
  Sender: FDA-Public Use
  Company Number: TPA2004A00330

PATIENT
  Age: 66 Year
  Sex: Male
  Weight: 99.7913 kg

DRUGS (8)
  1. ACTOS [Suspect]
     Indication: DIABETES MELLITUS
     Dosage: 45 MG, 1 IN 1 D, PER ORAL
     Route: 048
  2. SYNTHROID [Concomitant]
  3. LABETALOL HCL [Concomitant]
  4. DIOVAN [Concomitant]
  5. BUFFERIN (BUFFERIN/USA/) [Concomitant]
  6. PRAVACHOL [Concomitant]
  7. LASIX [Concomitant]
  8. MECLIZINE [Concomitant]

REACTIONS (3)
  - CONDITION AGGRAVATED [None]
  - HEART RATE DECREASED [None]
  - NEPHROLITHIASIS [None]
